FAERS Safety Report 5919652-X (Version None)
Quarter: 2008Q3

REPORT INFORMATION
  Report Type: 
  Country: None (occurrence: None)
  Receive Date: 20080909
  Receipt Date: 20070810
  Transmission Date: 20090109
  Serious: Yes (Death)
  Sender: FDA-Public Use
  Company Number: 163-20785-07071523

PATIENT
  Age: 73 Year
  Sex: Male

DRUGS (5)
  1. THALOMID [Suspect]
     Indication: PANCREATIC CARCINOMA
     Dosage: 50 MG, 1 IN 1 D, ORAL
     Route: 048
     Dates: start: 20070621, end: 20070709
  2. FLUOROURACIL [Concomitant]
  3. OXYCONTIN [Concomitant]
  4. OXYCODONE HCL [Concomitant]
  5. ALEVE (CAPLET) [Concomitant]

REACTIONS (3)
  - NAUSEA [None]
  - NEOPLASM PROGRESSION [None]
  - VOMITING [None]
